FAERS Safety Report 20893394 (Version 1)
Quarter: 2022Q2

REPORT INFORMATION
  Report Type: Spontaneous
  Country: CA (occurrence: CA)
  Receive Date: 20220531
  Receipt Date: 20220531
  Transmission Date: 20220721
  Serious: Yes (Life-Threatening, Other)
  Sender: FDA-Public Use
  Company Number: CA-TEVA-2022-CA-2041654

PATIENT
  Sex: Female

DRUGS (1)
  1. QUETIAPINE FUMARATE [Suspect]
     Active Substance: QUETIAPINE FUMARATE
     Indication: Product used for unknown indication
     Route: 048

REACTIONS (16)
  - Abdominal discomfort [Unknown]
  - Agitation [Unknown]
  - Depression [Unknown]
  - Dizziness [Unknown]
  - Dry mouth [Unknown]
  - Gait disturbance [Unknown]
  - Headache [Unknown]
  - Injury [Unknown]
  - Insomnia [Unknown]
  - Micturition urgency [Unknown]
  - Nausea [Unknown]
  - Oropharyngeal pain [Unknown]
  - Somnolence [Unknown]
  - Suicidal ideation [Unknown]
  - Suicide attempt [Unknown]
  - Vomiting [Unknown]
